FAERS Safety Report 21612597 (Version 1)
Quarter: 2022Q4

REPORT INFORMATION
  Report Type: Spontaneous
  Country: DE (occurrence: DE)
  Receive Date: 20221118
  Receipt Date: 20221118
  Transmission Date: 20230113
  Serious: Yes (Other)
  Sender: FDA-Public Use
  Company Number: DE-DENTSPLY-2022SCDP000332

PATIENT
  Age: 50 Year
  Sex: Female

DRUGS (1)
  1. MEPIVACAINE HYDROCHLORIDE [Suspect]
     Active Substance: MEPIVACAINE HYDROCHLORIDE
     Indication: Inflammation
     Dosage: 1 DOSAGE FORM, ONCE A DAY 1% MEAVERIN SOLUTION FOR INJECTION
     Route: 058
     Dates: start: 202209, end: 202209

REACTIONS (5)
  - Hallucination [None]
  - Delirium [None]
  - Visual impairment [None]
  - Muscle spasms [None]
  - Hypertension [None]

NARRATIVE: CASE EVENT DATE: 20220901
